FAERS Safety Report 25231161 (Version 1)
Quarter: 2025Q2

REPORT INFORMATION
  Report Type: Spontaneous
  Country: US (occurrence: None)
  Receive Date: 20250423
  Receipt Date: 20250423
  Transmission Date: 20250716
  Serious: Yes (Hospitalization)
  Sender: FDA-CTU
  Company Number: None

PATIENT
  Age: 70 Year
  Sex: Male

DRUGS (1)
  1. KESIMPTA [Suspect]
     Active Substance: OFATUMUMAB
     Indication: Multiple sclerosis
     Dosage: 20MG MONTHLY

REACTIONS (10)
  - Post procedural complication [None]
  - Headache [None]
  - Ulcer haemorrhage [None]
  - Pain in extremity [None]
  - Arthralgia [None]
  - Back pain [None]
  - Pain in extremity [None]
  - Musculoskeletal stiffness [None]
  - Gait disturbance [None]
  - Multiple sclerosis [None]
